FAERS Safety Report 14012470 (Version 11)
Quarter: 2018Q2

REPORT INFORMATION
  Report Type: Spontaneous
  Country: DE (occurrence: DE)
  Receive Date: 20170926
  Receipt Date: 20180521
  Transmission Date: 20180711
  Serious: Yes (Hospitalization, Other)
  Sender: FDA-Public Use
  Company Number: DE-PFIZER INC-2017408265

PATIENT
  Age: 78 Year
  Sex: Male

DRUGS (10)
  1. VALSARTAN AND HYDROCHLOROTHIAZIDE [Concomitant]
     Active Substance: HYDROCHLOROTHIAZIDE\VALSARTAN
     Dosage: 80 / 12.5 MG, 1X/DAY
     Route: 048
  2. IBUPROFEN. [Suspect]
     Active Substance: IBUPROFEN
     Dosage: UNK
     Route: 065
  3. EZETIMIBE/SIMVASTATIN [Concomitant]
     Dosage: 10/20MG 1X/DAY
     Route: 048
  4. DREISAFER [Concomitant]
     Indication: IRON DEFICIENCY
     Dosage: UNK
  5. METAMIZOL [Concomitant]
     Active Substance: METAMIZOLE SODIUM
     Indication: ANALGESIC THERAPY
     Dosage: 500 MG, PRN
     Route: 065
  6. UNACID PD [Interacting]
     Active Substance: SULTAMICILLIN TOSYLATE
     Indication: INFECTED BITE
     Dosage: 750MG, 2X/DAY (2-0-2)
     Route: 048
     Dates: start: 20170824
  7. RIVAROXABAN [Concomitant]
     Active Substance: RIVAROXABAN
     Indication: ATRIAL FIBRILLATION
     Dosage: 20 MG, DAILY
     Route: 048
  8. BISOPROLOL [Concomitant]
     Active Substance: BISOPROLOL
     Dosage: 5 MG, 1/2 - 0- 1/2
     Route: 065
  9. XARELTO [Interacting]
     Active Substance: RIVAROXABAN
     Dosage: 20 MG, UNK
     Route: 065
     Dates: start: 201709, end: 201709
  10. VOLTAREN RESINAT [Interacting]
     Active Substance: DICLOFENAC
     Dosage: UNK
     Route: 065

REACTIONS (15)
  - Haemorrhagic anaemia [Unknown]
  - Haematochezia [Unknown]
  - Iron deficiency [Unknown]
  - Gastrointestinal angiectasia [Recovered/Resolved]
  - Haemorrhage [Recovered/Resolved]
  - Haemorrhage [Recovered/Resolved]
  - Diarrhoea [Unknown]
  - Haemoglobin decreased [Unknown]
  - Drug interaction [Unknown]
  - Faeces discoloured [Unknown]
  - Gastrointestinal angiectasia [Recovered/Resolved]
  - Lower gastrointestinal haemorrhage [Recovered/Resolved]
  - Gastrointestinal angiectasia [Recovered/Resolved]
  - Dizziness [Unknown]
  - Fatigue [Unknown]

NARRATIVE: CASE EVENT DATE: 2017
